FAERS Safety Report 6986105-X (Version None)
Quarter: 2010Q3

REPORT INFORMATION
  Report Type: 
  Country: None (occurrence: None)
  Receive Date: 20100910
  Receipt Date: 20100901
  Transmission Date: 20110219
  Serious: Yes (Death, Hospitalization)
  Sender: FDA-Public Use
  Company Number: A-CH2010-39077

PATIENT
  Age: 78 Year
  Sex: Male
  Weight: 80 kg

DRUGS (5)
  1. TRACLEER [Suspect]
     Indication: PULMONARY HYPERTENSION
     Dosage: 125 MG, BID, ORAL  62.5 MG, BID ORAL
     Route: 048
     Dates: start: 20060801, end: 20070301
  2. TRACLEER [Suspect]
     Indication: PULMONARY HYPERTENSION
     Dosage: 125 MG, BID, ORAL  62.5 MG, BID ORAL
     Route: 048
     Dates: start: 20070301, end: 20100813
  3. REVATIO [Concomitant]
  4. PREVISCAN (FLUINDIONE) [Concomitant]
  5. LASIX [Concomitant]

REACTIONS (8)
  - ANURIA [None]
  - CARDIOGENIC SHOCK [None]
  - CYTOLYTIC HEPATITIS [None]
  - INTERNATIONAL NORMALISED RATIO INCREASED [None]
  - OFF LABEL USE [None]
  - RESUSCITATION [None]
  - RIGHT VENTRICULAR FAILURE [None]
  - VENTRICULAR TACHYCARDIA [None]
